FAERS Safety Report 8055003-5 (Version None)
Quarter: 2012Q1

REPORT INFORMATION
  Report Type: 
  Country: None (occurrence: None)
  Receive Date: 20120119
  Receipt Date: 20120113
  Transmission Date: 20120608
  Serious: Yes (Hospitalization, Congenital Anomaly, Other)
  Sender: FDA-Public Use
  Company Number: US-PFIZER INC-2011105759

PATIENT
  Sex: Male

DRUGS (3)
  1. EFFEXOR [Suspect]
     Dosage: UNK
     Route: 064
  2. ZOLOFT [Suspect]
     Dosage: 50 MG
     Route: 064
     Dates: start: 19970101
  3. ZOLOFT [Suspect]
     Dosage: 100 MG
     Route: 064
     Dates: start: 19970101

REACTIONS (3)
  - TALIPES [None]
  - FOETAL EXPOSURE DURING PREGNANCY [None]
  - AORTIC VALVE INCOMPETENCE [None]
